FAERS Safety Report 11167434 (Version 1)
Quarter: 2015Q2

REPORT INFORMATION
  Report Type: Spontaneous
  Country: US (occurrence: US)
  Receive Date: 20150605
  Receipt Date: 20150605
  Transmission Date: 20150821
  Serious: Yes (Other)
  Sender: FDA-Public Use
  Company Number: US-JNJFOC-20150521066

PATIENT
  Age: 56 Year
  Sex: Female
  Weight: 64.86 kg

DRUGS (14)
  1. METOPROLOL [Concomitant]
     Active Substance: METOPROLOL
     Indication: BLOOD PRESSURE
     Route: 048
  2. BUSPIRONE [Concomitant]
     Active Substance: BUSPIRONE HYDROCHLORIDE
     Indication: ANXIETY
     Route: 048
     Dates: end: 201505
  3. TIZANIDINE (TIZANIDINE) [Concomitant]
     Active Substance: TIZANIDINE
     Indication: MUSCLE SPASMS
     Route: 048
     Dates: start: 201505
  4. BUSPIRONE [Concomitant]
     Active Substance: BUSPIRONE HYDROCHLORIDE
     Indication: ANXIETY
     Route: 048
     Dates: start: 201505
  5. OXYCODONE [Concomitant]
     Active Substance: OXYCODONE
     Indication: PAIN
     Route: 048
     Dates: end: 201505
  6. AMLODIPINE [Concomitant]
     Active Substance: AMLODIPINE BESYLATE
     Indication: BLOOD PRESSURE
     Route: 048
     Dates: start: 201505
  7. CITALOPRAM [Concomitant]
     Active Substance: CITALOPRAM HYDROBROMIDE
     Indication: DEPRESSION
     Route: 048
  8. DICLOFENAC [Concomitant]
     Active Substance: DICLOFENAC
     Indication: MUSCLE SPASMS
     Route: 048
     Dates: start: 2015
  9. CYCLOBENZAPRINE [Concomitant]
     Active Substance: CYCLOBENZAPRINE
     Indication: MUSCLE RELAXANT THERAPY
     Route: 048
  10. OXYCONTIN [Concomitant]
     Active Substance: OXYCODONE HYDROCHLORIDE
     Indication: PAIN
     Route: 048
     Dates: start: 20150421, end: 201505
  11. LISINOPRIL. [Concomitant]
     Active Substance: LISINOPRIL
     Indication: BLOOD PRESSURE
     Route: 048
  12. BENADRYL(DIPHENHYDRAMINE HYDROCHLORIDE) [Concomitant]
     Indication: MULTIPLE ALLERGIES
     Route: 048
  13. UNSPECIFIED FENTANYL TRANSEDERMAL SYSTEM [Suspect]
     Active Substance: FENTANYL
     Indication: BACK DISORDER
     Route: 062
     Dates: start: 20141203, end: 201412
  14. TRAMADOL [Concomitant]
     Active Substance: TRAMADOL
     Indication: ANTIINFLAMMATORY THERAPY
     Route: 048
     Dates: start: 201505

REACTIONS (6)
  - Renal failure [Unknown]
  - Road traffic accident [Recovered/Resolved]
  - Hepatic failure [Unknown]
  - Concussion [Unknown]
  - Paraesthesia [Not Recovered/Not Resolved]
  - Drug ineffective [Unknown]

NARRATIVE: CASE EVENT DATE: 201412
